FAERS Safety Report 9662522 (Version 2)
Quarter: 2013Q4

REPORT INFORMATION
  Report Type: Spontaneous
  Country: US (occurrence: US)
  Receive Date: 20131031
  Receipt Date: 20131031
  Transmission Date: 20140711
  Serious: No
  Sender: FDA-Public Use
  Company Number: US-PURDUE-USA-2011-0066552

PATIENT
  Age: 44 Year
  Sex: Female

DRUGS (2)
  1. OXYCONTIN (NDA 22-272) [Suspect]
     Indication: PAIN IN EXTREMITY
     Dosage: 40 MG, 4 TABLETS DAILY
  2. OXYCONTIN (NDA 22-272) [Suspect]
     Dosage: 80 MG, 9 TABLETS DAILY

REACTIONS (5)
  - Inadequate analgesia [Unknown]
  - Drug ineffective [Unknown]
  - Constipation [Unknown]
  - Headache [Unknown]
  - Abdominal pain [Unknown]
